FAERS Safety Report 9176316 (Version 1)
Quarter: 2013Q1

REPORT INFORMATION
  Report Type: Spontaneous
  Country: US (occurrence: US)
  Receive Date: 20130321
  Receipt Date: 20130321
  Transmission Date: 20140127
  Serious: No
  Sender: FDA-Public Use
  Company Number: US-009507513-1303USA007627

PATIENT
  Sex: Female

DRUGS (1)
  1. ZOCOR [Suspect]
     Dosage: UNK
     Route: 048
     Dates: start: 201203, end: 20130227

REACTIONS (1)
  - Decreased appetite [Not Recovered/Not Resolved]
